FAERS Safety Report 6434358-9 (Version None)
Quarter: 2009Q4

REPORT INFORMATION
  Report Type: 
  Country: None (occurrence: None)
  Receive Date: 20091110
  Receipt Date: 20090203
  Transmission Date: 20100525
  Serious: No
  Sender: FDA-Public Use
  Company Number: US-ASTRAZENECA-2009SE04737

PATIENT
  Sex: Female

DRUGS (10)
  1. PRILOSEC OTC [Suspect]
     Dosage: 1 TABLET, 1 /DAY
     Route: 048
  2. FOSAMAX [Concomitant]
  3. TOPROL-XL [Concomitant]
     Dosage: UNKNOWN
  4. LIPITOR [Concomitant]
     Dosage: UNKNOWN
  5. TRIAMTERENE [Concomitant]
     Dosage: UNKNOWN
  6. BABY ASPIRIN [Concomitant]
     Dosage: UNKNOWN
  7. CENTRUM SILVER [Concomitant]
     Dosage: UNKNOWN
  8. CO Q10 [Concomitant]
  9. HOMOCYSTINE [Concomitant]
     Dosage: UNKNOWN
  10. LOVAZA [Concomitant]
     Dosage: UNKNOWN

REACTIONS (1)
  - BLOOD CALCIUM INCREASED [None]
